FAERS Safety Report 7570073-6 (Version None)
Quarter: 2011Q2

REPORT INFORMATION
  Report Type: 
  Country: None (occurrence: None)
  Receive Date: 20110624
  Receipt Date: 20110617
  Transmission Date: 20111010
  Serious: Yes (Other)
  Sender: FDA-Public Use
  Company Number: US-SANOFI-AVENTIS-2011SA039568

PATIENT
  Age: 36 Year
  Sex: Female
  Weight: 90.72 kg

DRUGS (2)
  1. ZANTAC [Concomitant]
  2. ERGOCALCIFEROL [Suspect]
     Indication: VITAMIN D DECREASED
     Route: 048
     Dates: start: 20110401, end: 20110520

REACTIONS (4)
  - LIP SWELLING [None]
  - ANGIOEDEMA [None]
  - SWOLLEN TONGUE [None]
  - PHARYNGEAL OEDEMA [None]
